FAERS Safety Report 13769886 (Version 1)
Quarter: 2017Q3

REPORT INFORMATION
  Report Type: Spontaneous
  Country: RU (occurrence: RU)
  Receive Date: 20170719
  Receipt Date: 20170719
  Transmission Date: 20171127
  Serious: Yes (Hospitalization, Other)
  Sender: FDA-Public Use
  Company Number: RU-ASTRAZENECA-2017SE72849

PATIENT
  Age: 58 Year
  Sex: Male
  Weight: 82 kg

DRUGS (7)
  1. BRILINTA [Suspect]
     Active Substance: TICAGRELOR
     Indication: STENT PLACEMENT
     Route: 048
     Dates: start: 201610
  2. AMLODIPINE [Concomitant]
     Active Substance: AMLODIPINE BESYLATE
  3. OMEPRAZOLUM [Concomitant]
  4. ENAP [Concomitant]
     Active Substance: ENALAPRIL
  5. BRILINTA [Suspect]
     Active Substance: TICAGRELOR
     Indication: MYOCARDIAL INFARCTION
     Route: 048
     Dates: start: 201610
  6. METOPROLOL. [Concomitant]
     Active Substance: METOPROLOL
  7. MOXONIDINE [Concomitant]
     Active Substance: MOXONIDINE

REACTIONS (3)
  - Angina pectoris [Not Recovered/Not Resolved]
  - Contusion [Not Recovered/Not Resolved]
  - Vascular stent thrombosis [Unknown]

NARRATIVE: CASE EVENT DATE: 201703
